FAERS Safety Report 23446317 (Version 1)
Quarter: 2024Q1

REPORT INFORMATION
  Report Type: Spontaneous
  Country: US (occurrence: None)
  Receive Date: 20240125
  Receipt Date: 20240125
  Transmission Date: 20240409
  Serious: Yes (Hospitalization)
  Sender: FDA-Public Use
  Company Number: None

PATIENT
  Age: 66 Year
  Sex: Female

DRUGS (2)
  1. AUSTEDO [Suspect]
     Active Substance: DEUTETRABENAZINE
     Indication: Product used for unknown indication
     Dosage: OTHER FREQUENCY : BID WITH FOOD;?
     Route: 048
     Dates: start: 20231107
  2. AUSTEDO [Suspect]
     Active Substance: DEUTETRABENAZINE
     Dosage: OTHER FREQUENCY : BID WITH FOOD;?
     Route: 048

REACTIONS (3)
  - Tremor [None]
  - Therapy interrupted [None]
  - Product use issue [None]

NARRATIVE: CASE EVENT DATE: 20231107
